FAERS Safety Report 7218008-X (Version None)
Quarter: 2011Q1

REPORT INFORMATION
  Report Type: 
  Country: None (occurrence: None)
  Receive Date: 20110110
  Receipt Date: 20110103
  Transmission Date: 20110831
  Serious: Yes (Life-Threatening, Hospitalization)
  Sender: FDA-Public Use
  Company Number: B0692796A

PATIENT
  Age: 32 Year
  Sex: Male

DRUGS (2)
  1. CLAMOXYL [Suspect]
     Dosage: 1500MG PER DAY
     Route: 065
  2. ZANTAC [Suspect]
     Indication: PEPTIC ULCER
     Dosage: 100MG PER DAY
     Route: 065

REACTIONS (1)
  - GASTRIC HAEMORRHAGE [None]
